FAERS Safety Report 11751984 (Version 1)
Quarter: 2015Q4

REPORT INFORMATION
  Report Type: Spontaneous
  Country: CA (occurrence: CA)
  Receive Date: 20151118
  Receipt Date: 20151118
  Transmission Date: 20160304
  Serious: Yes (Hospitalization)
  Sender: FDA-Public Use
  Company Number: CA-GLAXOSMITHKLINE-A1065458A

PATIENT
  Sex: Female
  Weight: 44 kg

DRUGS (3)
  1. ADVAIR HFA [Suspect]
     Active Substance: FLUTICASONE PROPIONATE\SALMETEROL XINAFOATE
     Indication: BRONCHIAL DISORDER
     Dosage: 50/250 MCG
     Route: 055
     Dates: start: 2013
  2. NITROSPRAY [Concomitant]
     Indication: MYOCARDIAL ISCHAEMIA
  3. ADVAIR HFA [Suspect]
     Active Substance: FLUTICASONE PROPIONATE\SALMETEROL XINAFOATE
     Indication: CHRONIC OBSTRUCTIVE PULMONARY DISEASE
     Dosage: 1 DF, QD, 1 DOSE DIE

REACTIONS (7)
  - Visual acuity reduced [Not Recovered/Not Resolved]
  - Vision blurred [Not Recovered/Not Resolved]
  - Malaise [Unknown]
  - Lethargy [Unknown]
  - Blood potassium decreased [Unknown]
  - Blood sodium decreased [Unknown]
  - Visual impairment [Not Recovered/Not Resolved]

NARRATIVE: CASE EVENT DATE: 2013
